FAERS Safety Report 16242099 (Version 1)
Quarter: 2019Q2

REPORT INFORMATION
  Report Type: Spontaneous
  Country: US (occurrence: US)
  Receive Date: 20190426
  Receipt Date: 20190426
  Transmission Date: 20190711
  Serious: No
  Sender: FDA-Public Use
  Company Number: US-TEVA-2019-US-1034937

PATIENT
  Sex: Female

DRUGS (1)
  1. NORTREL 7/7/7 [Suspect]
     Active Substance: ETHINYL ESTRADIOL\NORETHINDRONE
     Route: 065

REACTIONS (5)
  - Fluid retention [Recovering/Resolving]
  - Product substitution issue [Unknown]
  - Paraesthesia [Recovering/Resolving]
  - Weight increased [Recovering/Resolving]
  - Hypoaesthesia [Recovering/Resolving]
